FAERS Safety Report 6436111-9 (Version None)
Quarter: 2009Q4

REPORT INFORMATION
  Report Type: 
  Country: None (occurrence: None)
  Receive Date: 20091111
  Receipt Date: 20091015
  Transmission Date: 20100525
  Serious: Yes (Hospitalization)
  Sender: FDA-Public Use
  Company Number: CA-ELI_LILLY_AND_COMPANY-CA200909005570

PATIENT
  Sex: Female
  Weight: 71 kg

DRUGS (12)
  1. ZYPREXA [Suspect]
     Dosage: 5 MG, EACH EVENING
     Dates: start: 20000208, end: 20000418
  2. ZYPREXA [Suspect]
     Dosage: 2.5 MG, EACH EVENING
     Dates: start: 20000419, end: 20000614
  3. ZYPREXA [Suspect]
     Dosage: 2.5 MG, AS NEEDED
     Dates: start: 20000920, end: 20010116
  4. ZYPREXA [Suspect]
     Dosage: 2.5 MG, EACH EVENING
     Dates: start: 20010117, end: 20010214
  5. ZYPREXA [Suspect]
     Dosage: 5 MG, UNK
     Dates: start: 20040620, end: 20040719
  6. ZYPREXA [Suspect]
     Dosage: 10 MG, UNK
     Dates: start: 20040720, end: 20040801
  7. ZYPREXA [Suspect]
     Dosage: 7.5 MG, UNK
     Dates: start: 20040801, end: 20040801
  8. ZYPREXA [Suspect]
     Dosage: 2.5 UNK, UNK
     Dates: start: 20040819, end: 20040910
  9. LITHIUM [Concomitant]
     Dosage: 900 MG, EACH EVENING
  10. CELEXA [Concomitant]
     Indication: ANTIDEPRESSANT THERAPY
     Dosage: 10 MG, DAILY (1/D)
     Dates: start: 20010117, end: 20010213
  11. CELEXA [Concomitant]
     Dosage: 20 MG, EACH MORNING
     Dates: start: 20010214
  12. WELLBUTRIN [Concomitant]
     Indication: ANTIDEPRESSANT THERAPY
     Dosage: 150 MG, EACH MORNING
     Dates: start: 20010321

REACTIONS (6)
  - DIABETES MELLITUS [None]
  - DRUG TOXICITY [None]
  - DYSLIPIDAEMIA [None]
  - INCREASED APPETITE [None]
  - METABOLIC DISORDER [None]
  - WEIGHT INCREASED [None]
